FAERS Safety Report 5548158-5 (Version None)
Quarter: 2007Q4

REPORT INFORMATION
  Report Type: 
  Country: None (occurrence: None)
  Receive Date: 20071211
  Receipt Date: 20070314
  Transmission Date: 20080405
  Serious: No
  Sender: FDA-Public Use
  Company Number: US-AMGEN-KDL212579

PATIENT
  Sex: Male

DRUGS (4)
  1. ENBREL [Suspect]
     Indication: RHEUMATOID ARTHRITIS
     Route: 058
     Dates: start: 20070217, end: 20070314
  2. METHOTREXATE [Concomitant]
     Dates: start: 20060901
  3. PROTONIX [Concomitant]
  4. FOLIC ACID [Concomitant]

REACTIONS (1)
  - INJECTION SITE URTICARIA [None]
